FAERS Safety Report 9393541 (Version 1)
Quarter: 2013Q3

REPORT INFORMATION
  Report Type: Spontaneous
  Country: US (occurrence: US)
  Receive Date: 20130710
  Receipt Date: 20130710
  Transmission Date: 20140515
  Serious: Yes (Hospitalization)
  Sender: FDA-Public Use
  Company Number: US-GLAXOSMITHKLINE-A0786251A

PATIENT
  Age: 53 Year
  Sex: Female

DRUGS (1)
  1. AVANDIA [Suspect]
     Indication: DIABETES MELLITUS
     Dosage: 4MG TWICE PER DAY
     Route: 048
     Dates: start: 20020807, end: 20060604

REACTIONS (4)
  - Cerebrovascular accident [Not Recovered/Not Resolved]
  - Vision blurred [Unknown]
  - Blindness unilateral [Unknown]
  - Coronary artery bypass [Unknown]
